FAERS Safety Report 9263091 (Version 1)
Quarter: 2013Q2

REPORT INFORMATION
  Report Type: Spontaneous
  Country: US (occurrence: None)
  Receive Date: 20130426
  Receipt Date: 20130426
  Transmission Date: 20140414
  Serious: Yes (Disabling, Other)
  Sender: FDA-Public Use
  Company Number: None

PATIENT
  Age: 41 Year
  Sex: Female
  Weight: 53.07 kg

DRUGS (1)
  1. MELOXICAM [Suspect]
     Indication: BACK PAIN
     Dosage: ONE TABLET
     Route: 048
     Dates: start: 20130322, end: 20130409

REACTIONS (21)
  - Hypoaesthesia [None]
  - Paraesthesia [None]
  - Muscular weakness [None]
  - Pain in extremity [None]
  - Gait disturbance [None]
  - Spinal pain [None]
  - Headache [None]
  - Dizziness [None]
  - Vision blurred [None]
  - Abnormal sensation in eye [None]
  - Disturbance in attention [None]
  - Dizziness [None]
  - Heart rate irregular [None]
  - Heart rate increased [None]
  - Urinary retention [None]
  - Constipation [None]
  - Tinnitus [None]
  - Fatigue [None]
  - Insomnia [None]
  - Alopecia [None]
  - Weight increased [None]
